FAERS Safety Report 26092902 (Version 1)
Quarter: 2025Q4

REPORT INFORMATION
  Report Type: Spontaneous
  Country: CN (occurrence: CN)
  Receive Date: 20251126
  Receipt Date: 20251126
  Transmission Date: 20260118
  Serious: Yes (Hospitalization)
  Sender: PFIZER
  Company Number: CN-PFIZER INC-PV202500137553

PATIENT
  Age: 46 Year
  Sex: Female
  Weight: 62.5 kg

DRUGS (3)
  1. EPIRUBICIN HYDROCHLORIDE [Suspect]
     Active Substance: EPIRUBICIN HYDROCHLORIDE
     Indication: Breast cancer
     Dosage: 162.000 MG, ONCE EVERY 21 DAYS
     Route: 041
     Dates: start: 20250724, end: 20250925
  2. CYCLOPHOSPHAMIDE [Suspect]
     Active Substance: CYCLOPHOSPHAMIDE
     Indication: Breast cancer
     Dosage: 972.000 MG, ONCE EVERY 21 DAYS
     Route: 041
     Dates: start: 20250724, end: 20250925
  3. PACLITAXEL [Concomitant]
     Active Substance: PACLITAXEL
     Indication: Breast cancer
     Dosage: 218.000 MG, ONCE EVERY 14 DAYS
     Route: 041
     Dates: start: 20251016, end: 20251030

REACTIONS (3)
  - Haematuria [Not Recovered/Not Resolved]
  - Chromaturia [Not Recovered/Not Resolved]
  - Haemorrhage urinary tract [Not Recovered/Not Resolved]

NARRATIVE: CASE EVENT DATE: 20251101
